FAERS Safety Report 9347953 (Version 2)
Quarter: 2013Q4

REPORT INFORMATION
  Report Type: Other
  Country: GB (occurrence: GB)
  Receive Date: 20130614
  Receipt Date: 20131031
  Transmission Date: 20140711
  Serious: Yes (Other)
  Sender: FDA-Public Use
  Company Number: GB-TARO PHARMACEUTICALS U.S.A., INC-2013SUN00724

PATIENT
  Age: 78 Year
  Sex: Male
  Weight: 88.9 kg

DRUGS (3)
  1. WARFARIN [Suspect]
     Indication: ATRIAL FIBRILLATION
     Dosage: 18 MG, WEEKLY
     Route: 048
     Dates: start: 20120601
  2. SIMVASTATIN [Concomitant]
  3. SOTALOL [Concomitant]

REACTIONS (6)
  - Gastroenteritis [Unknown]
  - Functional gastrointestinal disorder [Recovering/Resolving]
  - Change of bowel habit [Recovering/Resolving]
  - Defaecation urgency [Recovered/Resolved]
  - Diarrhoea [Unknown]
  - Flatulence [Unknown]
